FAERS Safety Report 7563486-X (Version None)
Quarter: 2011Q2

REPORT INFORMATION
  Report Type: 
  Country: None (occurrence: None)
  Receive Date: 20110622
  Receipt Date: 20110608
  Transmission Date: 20111010
  Serious: Yes (Other)
  Sender: FDA-Public Use
  Company Number: GR-CELGENEUS-066-50794-11061372

PATIENT

DRUGS (1)
  1. VIDAZA [Suspect]
     Dosage: 75 MILLIGRAM/SQ. METER
     Route: 058

REACTIONS (6)
  - ACUTE MYELOID LEUKAEMIA [None]
  - HAEMATOTOXICITY [None]
  - FEBRILE NEUTROPENIA [None]
  - SKIN REACTION [None]
  - RESPIRATORY TRACT INFECTION [None]
  - MYELODYSPLASTIC SYNDROME TRANSFORMATION [None]
